FAERS Safety Report 26037306 (Version 1)
Quarter: 2025Q4

REPORT INFORMATION
  Report Type: Report from Study
  Country: GB (occurrence: GB)
  Receive Date: 20251112
  Receipt Date: 20251112
  Transmission Date: 20260119
  Serious: Yes (Other)
  Sender: BAYER HEALTHCARE PHARMACEUTICALS INC.
  Company Number: GB-BAYER-2025A133617

PATIENT
  Age: 26 Year
  Sex: Male

DRUGS (2)
  1. REGORAFENIB [Suspect]
     Active Substance: REGORAFENIB
     Indication: Rhabdomyosarcoma
     Dosage: UNK
     Dates: start: 20250918, end: 20251003
  2. REGORAFENIB [Suspect]
     Active Substance: REGORAFENIB
     Indication: Rhabdomyosarcoma
     Dosage: UNK
     Dates: start: 202510

REACTIONS (2)
  - Chest pain [Recovered/Resolved]
  - Myopericarditis [Recovered/Resolved]

NARRATIVE: CASE EVENT DATE: 20250101
